FAERS Safety Report 4781735-8 (Version None)
Quarter: 2005Q3

REPORT INFORMATION
  Report Type: 
  Country: None (occurrence: None)
  Receive Date: 20050927
  Receipt Date: 20050912
  Transmission Date: 20060218
  Serious: Yes (Hospitalization)
  Sender: FDA-Public Use
  Company Number: US_0504114947

PATIENT
  Age: 56 Year
  Sex: Female
  Weight: 98 kg

DRUGS (14)
  1. ZYPREXA [Suspect]
     Dosage: 15 MG DAY
     Dates: start: 19980701
  2. PROZAC [Concomitant]
  3. LITHIUM [Suspect]
  4. TRAZODONE [Concomitant]
  5. LIPITOR [Concomitant]
  6. TAGAMET [Concomitant]
  7. LORAZEPAM [Concomitant]
  8. ALBUTEROL [Concomitant]
  9. AZMACORT (TRIAMCINOLONE [Concomitant]
  10. ESTROGENS [Concomitant]
  11. REGLAN [Concomitant]
  12. KLONOPIN [Concomitant]
  13. CELEXA [Concomitant]
  14. CRESTOR [Concomitant]

REACTIONS (11)
  - DIABETES MELLITUS [None]
  - DRUG TOXICITY [None]
  - FLUID INTAKE RESTRICTION [None]
  - HYPERTENSION [None]
  - HYPONATRAEMIA [None]
  - HYPOTHYROIDISM [None]
  - LEUKOCYTOSIS [None]
  - OEDEMA PERIPHERAL [None]
  - POLYCYTHAEMIA [None]
  - WEIGHT FLUCTUATION [None]
  - WEIGHT INCREASED [None]
